FAERS Safety Report 9999201 (Version 1)
Quarter: 2014Q1

REPORT INFORMATION
  Report Type: Spontaneous
  Country: CA (occurrence: CA)
  Receive Date: 20140312
  Receipt Date: 20140312
  Transmission Date: 20141002
  Serious: Yes (Other)
  Sender: FDA-Public Use
  Company Number: CA-ROCHE-1363141

PATIENT
  Sex: Female

DRUGS (4)
  1. XOLAIR [Suspect]
     Indication: ASTHMA
     Route: 058
     Dates: start: 20120605
  2. ADVAIR [Concomitant]
  3. SINGULAIR [Concomitant]
  4. VENTOLIN [Concomitant]

REACTIONS (1)
  - Asthma [Unknown]
